FAERS Safety Report 8516636-2 (Version None)
Quarter: 2012Q3

REPORT INFORMATION
  Report Type: 
  Country: None (occurrence: None)
  Receive Date: 20120718
  Receipt Date: 20120711
  Transmission Date: 20120928
  Serious: Yes (Hospitalization)
  Sender: FDA-Public Use
  Company Number: US-SANOFI-AVENTIS-2012SA020354

PATIENT
  Age: 59 Year
  Sex: Male

DRUGS (15)
  1. FUROSEMIDE [Suspect]
  2. ANTITHROMBOTIC AGENTS [Concomitant]
  3. BLINDED THERAPY [Suspect]
     Dates: start: 20110927, end: 20111206
  4. SPIRONOLACTONE [Suspect]
  5. CARVEDILOL [Suspect]
  6. EZETIMIBE [Concomitant]
  7. TORSEMIDE [Suspect]
  8. ASPIRIN [Concomitant]
  9. DIURETICS [Concomitant]
  10. CHOLESTEROL- AND TRIGLYCERIDE REDUCERS [Concomitant]
  11. BLINDED THERAPY [Suspect]
     Dates: start: 20110325, end: 20110708
  12. ALL OTHER THERAPEUTIC PRODUCTS [Concomitant]
  13. ANTITHROMBOTIC AGENTS [Concomitant]
  14. BETA BLOCKING AGENTS [Concomitant]
  15. NITROGLYCERIN [Concomitant]

REACTIONS (3)
  - IRRITABLE BOWEL SYNDROME [None]
  - RENAL FAILURE ACUTE [None]
  - HYPOTENSION [None]
